FAERS Safety Report 9656725 (Version 1)
Quarter: 2013Q4

REPORT INFORMATION
  Report Type: Spontaneous
  Country: FR (occurrence: FR)
  Receive Date: 20131030
  Receipt Date: 20131030
  Transmission Date: 20140711
  Serious: Yes (Hospitalization)
  Sender: FDA-Public Use
  Company Number: FR-ROCHE-1293073

PATIENT
  Age: 53 Year
  Sex: Male

DRUGS (9)
  1. ROVALCYTE [Suspect]
     Indication: CYTOMEGALOVIRUS INFECTION
     Route: 048
     Dates: start: 201303, end: 20130918
  2. CELLCEPT [Suspect]
     Indication: PROPHYLAXIS AGAINST TRANSPLANT REJECTION
     Route: 048
     Dates: start: 201303, end: 20130908
  3. CELLCEPT [Suspect]
     Route: 065
  4. BACTRIM [Suspect]
     Indication: PRODUCT USED FOR UNKNOWN INDICATION
     Route: 048
     Dates: start: 201303, end: 20130919
  5. INEXIUM [Suspect]
     Indication: PRODUCT USED FOR UNKNOWN INDICATION
     Route: 048
     Dates: end: 20130919
  6. NEORAL [Concomitant]
     Route: 065
  7. CORTANCYL [Concomitant]
  8. AMLOR [Concomitant]
  9. MIMPARA [Concomitant]

REACTIONS (2)
  - Neutropenia [Recovered/Resolved]
  - Lymphopenia [Recovered/Resolved]
